FAERS Safety Report 7603254-3 (Version None)
Quarter: 2011Q2

REPORT INFORMATION
  Report Type: 
  Country: None (occurrence: None)
  Receive Date: 20110630
  Receipt Date: 20110617
  Transmission Date: 20111010
  Serious: Yes (Other)
  Sender: FDA-Public Use
  Company Number: DSA_46991_2011

PATIENT
  Age: 58 Year
  Sex: Female

DRUGS (1)
  1. MONO-TILDIEM (MONO-TILDIEM -DILTIAZEM HYDROCHLORIDE) (NOT SPECIFIED) [Suspect]
     Indication: HYPERTENSION
     Dosage: (DF ORAL)
     Route: 048
     Dates: start: 20110317, end: 20110328

REACTIONS (4)
  - TOXIC SKIN ERUPTION [None]
  - ASTHENIA [None]
  - ACUTE GENERALISED EXANTHEMATOUS PUSTULOSIS [None]
  - CELL DEATH [None]
